FAERS Safety Report 9290781 (Version 1)
Quarter: 2013Q2

REPORT INFORMATION
  Report Type: Spontaneous
  Country: CA (occurrence: CA)
  Receive Date: 20130515
  Receipt Date: 20130515
  Transmission Date: 20140414
  Serious: Yes (Other)
  Sender: FDA-Public Use
  Company Number: CA-TEVA-403308USA

PATIENT
  Sex: Male

DRUGS (1)
  1. AMOXICILLIN [Suspect]

REACTIONS (3)
  - Measles [Unknown]
  - Rash macular [Unknown]
  - Pyrexia [Unknown]
